FAERS Safety Report 22014733 (Version 6)
Quarter: 2023Q2

REPORT INFORMATION
  Report Type: Report from Study
  Country: AR (occurrence: AR)
  Receive Date: 20230221
  Receipt Date: 20230607
  Transmission Date: 20230722
  Serious: Yes (Hospitalization, Other)
  Sender: FDA-Public Use
  Company Number: AR-002147023-NVSC2022AR302441

PATIENT
  Age: 38 Year
  Sex: Female

DRUGS (7)
  1. KISQALI [Suspect]
     Active Substance: RIBOCICLIB
     Indication: Breast cancer metastatic
     Dosage: 600 MG, QD
     Route: 065
     Dates: start: 20220602
  2. KISQALI [Suspect]
     Active Substance: RIBOCICLIB
     Dosage: 600 MG, QD (BY MOUTH)
     Route: 048
     Dates: start: 20220901
  3. KISQALI [Suspect]
     Active Substance: RIBOCICLIB
     Dosage: 200 MG, TID
     Route: 048
     Dates: start: 20220920
  4. KISQALI [Suspect]
     Active Substance: RIBOCICLIB
     Dosage: 600 MG, QD (BY MOUTH)
     Route: 048
     Dates: start: 20220920
  5. KISQALI [Suspect]
     Active Substance: RIBOCICLIB
     Dosage: 600 MG, QD
     Route: 048
     Dates: start: 20220929
  6. KISQALI [Suspect]
     Active Substance: RIBOCICLIB
     Dosage: 600 MG, QD (BY MOUTH)
     Route: 048
     Dates: start: 202301
  7. LETROZOLE [Suspect]
     Active Substance: LETROZOLE
     Indication: Breast cancer metastatic
     Dosage: 2.5 MG, QD
     Route: 048
     Dates: start: 20220901

REACTIONS (19)
  - Seizure [Unknown]
  - Tremor [Recovered/Resolved]
  - Dehydration [Recovered/Resolved]
  - Movement disorder [Unknown]
  - Nosocomial infection [Unknown]
  - Confusional state [Unknown]
  - Wrong product administered [Unknown]
  - Hallucination [Recovered/Resolved]
  - Hip fracture [Unknown]
  - Metastasis [Unknown]
  - Psychotic disorder [Recovered/Resolved]
  - Disorientation [Recovered/Resolved]
  - Sleep disorder [Unknown]
  - Insomnia [Unknown]
  - Ligament sprain [Unknown]
  - Gait disturbance [Unknown]
  - Dehydration [Unknown]
  - Hypotension [Unknown]
  - Product dispensing error [Unknown]

NARRATIVE: CASE EVENT DATE: 20220901
